FAERS Safety Report 8248653-4 (Version None)
Quarter: 2012Q1

REPORT INFORMATION
  Report Type: 
  Country: None (occurrence: None)
  Receive Date: 20120331
  Receipt Date: 20120323
  Transmission Date: 20120608
  Serious: Yes (Other)
  Sender: FDA-Public Use
  Company Number: US-AMGEN-USASP2012019031

PATIENT
  Age: 61 Year
  Sex: Female

DRUGS (1)
  1. ENBREL [Suspect]
     Indication: RHEUMATOID ARTHRITIS
     Dosage: 50 MG, QWK
     Dates: start: 20120301

REACTIONS (13)
  - FATIGUE [None]
  - CRYING [None]
  - SOMNOLENCE [None]
  - TOOTH ABSCESS [None]
  - FEELING HOT [None]
  - PYREXIA [None]
  - DEPRESSION [None]
  - SUICIDAL IDEATION [None]
  - INJECTION SITE SWELLING [None]
  - INCREASED APPETITE [None]
  - PERIODONTITIS [None]
  - INJECTION SITE ERYTHEMA [None]
  - INJECTION SITE WARMTH [None]
